FAERS Safety Report 23651118 (Version 1)
Quarter: 2024Q1

REPORT INFORMATION
  Report Type: Spontaneous
  Country: US (occurrence: US)
  Receive Date: 20240320
  Receipt Date: 20240320
  Transmission Date: 20240410
  Serious: Yes (Hospitalization)
  Sender: FDA-Public Use
  Company Number: US-CHIESI-2024CHF01402

PATIENT
  Age: 73 Year
  Sex: Female
  Weight: 58 kg

DRUGS (2)
  1. FERRIPROX [Suspect]
     Active Substance: DEFERIPRONE
     Indication: Porphyria non-acute
     Dosage: 2000 MILLIGRAM, BID
     Route: 048
     Dates: start: 20240203
  2. FERRIPROX [Suspect]
     Active Substance: DEFERIPRONE
     Indication: Off label use

REACTIONS (7)
  - Illness [Unknown]
  - Dehydration [Recovered/Resolved]
  - Arthralgia [Recovered/Resolved]
  - Decreased appetite [Recovered/Resolved]
  - Diarrhoea [Recovered/Resolved]
  - Off label use [Recovered/Resolved]
  - Off label use [Recovered/Resolved]

NARRATIVE: CASE EVENT DATE: 20240203
